FAERS Safety Report 8618047-8 (Version None)
Quarter: 2012Q3

REPORT INFORMATION
  Report Type: 
  Country: None (occurrence: None)
  Receive Date: 20120824
  Receipt Date: 20120320
  Transmission Date: 20120928
  Serious: No
  Sender: FDA-Public Use
  Company Number: US-ASTRAZENECA-2012SE08379

PATIENT
  Age: 84 Year
  Sex: Female
  Weight: 70.3 kg

DRUGS (1)
  1. SYMBICORT [Suspect]
     Indication: COUGH
     Dosage: 160/4.5 MCG, 2 PUFFS, TWO TIMES A DAY
     Route: 055
     Dates: start: 20120301

REACTIONS (3)
  - DYSPNOEA [None]
  - OFF LABEL USE [None]
  - DISEASE RECURRENCE [None]
